FAERS Safety Report 4291517-1 (Version None)
Quarter: 2004Q1

REPORT INFORMATION
  Report Type: 
  Country: None (occurrence: None)
  Receive Date: 20040126
  Receipt Date: 20031030
  Transmission Date: 20041129
  Serious: No
  Sender: FDA-Public Use
  Company Number: USA031051223

PATIENT
  Age: 53 Year
  Sex: Male

DRUGS (2)
  1. FORTEO [Suspect]
     Indication: OSTEOPOROSIS
     Dosage: 20 UG/DAY
     Dates: start: 20030601
  2. CALTRATE + D [Concomitant]

REACTIONS (4)
  - NAUSEA [None]
  - NERVOUSNESS [None]
  - PAIN [None]
  - SLEEP DISORDER [None]
